FAERS Safety Report 5831384-5 (Version None)
Quarter: 2008Q3

REPORT INFORMATION
  Report Type: 
  Country: None (occurrence: None)
  Receive Date: 20080801
  Receipt Date: 20080714
  Transmission Date: 20090109
  Serious: No
  Sender: FDA-Public Use
  Company Number: US-BOEHRINGER INGELHEIM GMBH, GERMANY-2008-BP-07740BP

PATIENT
  Sex: Female

DRUGS (11)
  1. SPIRIVA [Suspect]
     Indication: CHRONIC OBSTRUCTIVE PULMONARY DISEASE
     Route: 055
     Dates: start: 20070104
  2. LASIX [Concomitant]
     Indication: FLUID RETENTION
  3. DIGOXIN [Concomitant]
     Indication: CARDIAC DISORDER
     Dates: end: 20080508
  4. ELAVIL [Concomitant]
     Indication: DEPRESSION
  5. NITROGLYCERIN [Concomitant]
     Indication: CARDIAC DISORDER
  6. SPIRONOLACTONE [Concomitant]
  7. VALIUM [Concomitant]
  8. PREDNISONE [Concomitant]
  9. OXYGEN [Concomitant]
  10. VITAMIN TAB [Concomitant]
  11. MINERAL TAB [Concomitant]

REACTIONS (1)
  - DRUG INEFFECTIVE [None]
